FAERS Safety Report 16297570 (Version 1)
Quarter: 2019Q2

REPORT INFORMATION
  Report Type: Spontaneous
  Country: US (occurrence: US)
  Receive Date: 20190510
  Receipt Date: 20190510
  Transmission Date: 20190711
  Serious: Yes (Hospitalization, Other)
  Sender: FDA-Public Use
  Company Number: US-MYLANLABS-2019M1044366

PATIENT
  Age: 18 Year
  Sex: Female

DRUGS (1)
  1. CETIRIZINE [Suspect]
     Active Substance: CETIRIZINE HYDROCHLORIDE
     Indication: ABDOMINAL PAIN
     Dosage: 10-16 TABLETS
     Route: 048

REACTIONS (6)
  - Intentional overdose [Recovering/Resolving]
  - Methaemoglobinaemia [Recovering/Resolving]
  - Blood creatinine increased [Unknown]
  - Cyanosis central [Recovering/Resolving]
  - Blood bilirubin increased [Unknown]
  - Blood bicarbonate decreased [Unknown]
